FAERS Safety Report 21003669 (Version 1)
Quarter: 2022Q2

REPORT INFORMATION
  Report Type: Spontaneous
  Country: US (occurrence: US)
  Receive Date: 20220624
  Receipt Date: 20220624
  Transmission Date: 20220721
  Serious: No
  Sender: FDA-Public Use
  Company Number: US-APOTEX-2022AP009486

PATIENT
  Sex: Female

DRUGS (1)
  1. MOXIFLOXACIN [Suspect]
     Active Substance: MOXIFLOXACIN
     Indication: Ocular rosacea
     Dosage: 2 GTT DROPS, QID (1 DROP ON BOTH EYES)
     Route: 047

REACTIONS (3)
  - Product dose omission issue [Unknown]
  - Product packaging difficult to open [Unknown]
  - No adverse event [Unknown]

NARRATIVE: CASE EVENT DATE: 20220617
